FAERS Safety Report 5426706-3 (Version None)
Quarter: 2007Q3

REPORT INFORMATION
  Report Type: 
  Country: None (occurrence: None)
  Receive Date: 20070827
  Receipt Date: 20070820
  Transmission Date: 20080115
  Serious: Yes (Death, Hospitalization)
  Sender: FDA-Public Use
  Company Number: JP-PFIZER INC-2007063112

PATIENT
  Sex: Female

DRUGS (10)
  1. ATARAX [Suspect]
     Indication: RESTLESSNESS
     Dosage: DAILY DOSE:25MG-FREQ:QD
     Route: 042
     Dates: start: 20070704, end: 20070723
  2. LASIX [Suspect]
     Indication: CARDIAC FAILURE
     Route: 048
  3. LASIX [Suspect]
     Indication: ASCITES
     Route: 042
     Dates: start: 20070722, end: 20070722
  4. MAGNESIUM OXIDE [Concomitant]
     Dates: start: 20070111, end: 20070723
  5. ATELEC [Concomitant]
     Dates: start: 20070111, end: 20070723
  6. DIOVAN [Concomitant]
     Dates: start: 20050317, end: 20070723
  7. ALLOPURINOL [Concomitant]
     Dates: start: 20070111, end: 20070723
  8. ALDACTONE [Concomitant]
     Dates: start: 20061231, end: 20070723
  9. FAMOTIDINE [Concomitant]
     Dates: start: 20070111, end: 20070723
  10. ZOLPIDEM [Concomitant]
     Dates: start: 20061010, end: 20070723

REACTIONS (2)
  - CARDIO-RESPIRATORY ARREST [None]
  - RESPIRATORY FAILURE [None]
